FAERS Safety Report 8208189-3 (Version None)
Quarter: 2012Q1

REPORT INFORMATION
  Report Type: 
  Country: None (occurrence: None)
  Receive Date: 20120314
  Receipt Date: 20120308
  Transmission Date: 20120608
  Serious: Yes (Other)
  Sender: FDA-Public Use
  Company Number: PHHY2011US16888

PATIENT
  Sex: Male
  Weight: 105 kg

DRUGS (12)
  1. VIMPAT [Concomitant]
     Indication: CONVULSION
     Dosage: UNK UKN, UNK
  2. SABRIL [Concomitant]
     Dosage: UNK UKN, UNK
     Route: 065
  3. FOCALIN XR [Concomitant]
     Dosage: UNK UKN, UNK
     Route: 065
  4. VIGABATRIN [Concomitant]
  5. VITAMINS NOS [Concomitant]
  6. ENALAPRIL MALEATE [Concomitant]
     Indication: BLOOD PRESSURE
     Dosage: UNK UKN, UNK
     Route: 065
  7. AFINITOR [Suspect]
     Indication: ASTROCYTOMA
     Dosage: 5 MG, DAILY
     Route: 048
     Dates: start: 20110107
  8. BACTRIM [Concomitant]
     Indication: PROPHYLAXIS
     Dosage: UNK UKN, UNK
     Route: 065
  9. CARAFATE [Concomitant]
     Dosage: UNK UKN, UNK
     Route: 065
  10. AFINITOR [Suspect]
     Indication: TUBEROUS SCLEROSIS
  11. CLONIDINE [Concomitant]
     Indication: BLOOD PRESSURE
     Dosage: UNK UKN, UNK
     Route: 065
  12. SIROLIMUS [Concomitant]

REACTIONS (14)
  - DISORIENTATION [None]
  - STOMATITIS [None]
  - FOAMING AT MOUTH [None]
  - CONVULSION [None]
  - FALL [None]
  - GAIT DISTURBANCE [None]
  - COUGH [None]
  - ATONIC SEIZURES [None]
  - HERPANGINA [None]
  - CYANOSIS [None]
  - NASAL CONGESTION [None]
  - DYSPNOEA [None]
  - BLOOD PRESSURE DECREASED [None]
  - PYREXIA [None]
